FAERS Safety Report 8448405-6 (Version None)
Quarter: 2012Q2

REPORT INFORMATION
  Report Type: 
  Country: None (occurrence: None)
  Receive Date: 20120619
  Receipt Date: 20120604
  Transmission Date: 20120825
  Serious: Yes (Other)
  Sender: FDA-Public Use
  Company Number: US-ARROW GEN-2012-09915

PATIENT
  Age: 81 Year
  Sex: Male

DRUGS (4)
  1. LISINOPRIL [Suspect]
     Indication: DIABETES MELLITUS
     Dosage: UNK
     Route: 065
  2. LISINOPRIL [Suspect]
     Indication: ATRIAL FIBRILLATION
  3. LISINOPRIL [Suspect]
     Indication: RENAL FAILURE CHRONIC
  4. LISINOPRIL [Suspect]
     Indication: CORONARY ARTERY DISEASE

REACTIONS (1)
  - HYPOTENSIVE TRANSFUSION REACTION [None]
